FAERS Safety Report 19739856 (Version 1)
Quarter: 2021Q3

REPORT INFORMATION
  Report Type: Report from Study
  Country: CA (occurrence: CA)
  Receive Date: 20210824
  Receipt Date: 20210824
  Transmission Date: 20211014
  Serious: Yes (Other)
  Sender: FDA-Public Use
  Company Number: NVSC2021CA082382

PATIENT
  Sex: Female

DRUGS (15)
  1. GABAPENTIN. [Suspect]
     Active Substance: GABAPENTIN
     Indication: NEURALGIA
     Dosage: 100 MG TAB (400MG TABS 3 IN AM, 2 TABS AT 3PM, 3 TABS AT 8PM)
     Route: 065
  2. DIMENHYDRINATE. [Concomitant]
     Active Substance: DIMENHYDRINATE
     Indication: PRODUCT USED FOR UNKNOWN INDICATION
     Dosage: 50 MG
     Route: 048
  3. RIXIMYO [Suspect]
     Active Substance: RITUXIMAB
     Dosage: UNK (ONSET MAR 2021)
     Route: 042
     Dates: end: 20210414
  4. QUETIAPINE. [Suspect]
     Active Substance: QUETIAPINE
     Indication: PANIC ATTACK
     Dosage: 25 MG (TAKE 1/2 WHEN PANIC ATTACK OCCURS AND TAKE 1/2 TAB AT BEDTIME)
     Route: 065
  5. FLUTICASONE PROPIONATE. [Suspect]
     Active Substance: FLUTICASONE PROPIONATE
     Indication: ASTHMA
     Dosage: 250 MG (TAKE 2 PUFFS WHEN NEEDED FOR ASTHMA)
     Route: 065
  6. RIXIMYO [Suspect]
     Active Substance: RITUXIMAB
     Dosage: 1000 MG (VIAL)
     Route: 042
     Dates: start: 20210324
  7. ULTRAVATE [Suspect]
     Active Substance: HALOBETASOL PROPIONATE
     Indication: PSORIASIS
     Dosage: UNK
     Route: 065
  8. CELEXA [Suspect]
     Active Substance: CITALOPRAM HYDROBROMIDE
     Indication: PRODUCT USED FOR UNKNOWN INDICATION
     Dosage: 30 MG (AM)
     Route: 065
  9. DIPHENHYDRAMINE. [Concomitant]
     Active Substance: DIPHENHYDRAMINE
     Indication: PRODUCT USED FOR UNKNOWN INDICATION
     Dosage: 50 MG (30MIN PRE?INFUSION)
     Route: 048
  10. DIPHENHYDRAMINE HCL [Concomitant]
     Active Substance: DIPHENHYDRAMINE HYDROCHLORIDE
     Indication: PRODUCT USED FOR UNKNOWN INDICATION
     Dosage: 50 MG (30MIN PRE?INFUSION)
     Route: 048
  11. ACETAMINOFEN [Concomitant]
     Active Substance: ACETAMINOPHEN
     Indication: PRODUCT USED FOR UNKNOWN INDICATION
     Dosage: 650 MG (30MINS PRE?INFUSION)
     Route: 048
  12. RIXIMYO [Suspect]
     Active Substance: RITUXIMAB
     Indication: RELAPSING-REMITTING MULTIPLE SCLEROSIS
     Dosage: 1000 MG (DAY 1 AND DAY 15 THEN ONCE EVERY 6 MONTHS)
     Route: 042
  13. BACLOFEN. [Suspect]
     Active Substance: BACLOFEN
     Indication: PRODUCT USED FOR UNKNOWN INDICATION
     Dosage: 10 MG (IN AM AND BEDTIME)
     Route: 065
  14. SALBUTAMOL SULFATE [Suspect]
     Active Substance: ALBUTEROL SULFATE
     Indication: ASTHMA
     Dosage: 100 UG MICROGRAM (WHEN FIRST PUFFER DOESN^T WORK)
     Route: 065
  15. METHYLPREDNISOLONE. [Concomitant]
     Active Substance: METHYLPREDNISOLONE
     Indication: PRODUCT USED FOR UNKNOWN INDICATION
     Dosage: 100 MG (30MIN PRE?INFUSION)
     Route: 042

REACTIONS (6)
  - Multiple sclerosis [Unknown]
  - Product use in unapproved indication [Unknown]
  - Noninfective encephalitis [Unknown]
  - Suspected COVID-19 [Unknown]
  - Cough [Recovered/Resolved]
  - Oropharyngeal pain [Recovered/Resolved]

NARRATIVE: CASE EVENT DATE: 2020
